FAERS Safety Report 19819274 (Version 1)
Quarter: 2021Q3

REPORT INFORMATION
  Report Type: Spontaneous
  Country: DE (occurrence: DE)
  Receive Date: 20210913
  Receipt Date: 20210913
  Transmission Date: 20211014
  Serious: Yes (Hospitalization, Other)
  Sender: FDA-Public Use
  Company Number: DE-AUROBINDO-AUR-APL-2021-038371

PATIENT
  Age: 86 Year
  Sex: Female
  Weight: 68 kg

DRUGS (9)
  1. SPIRONOLACTONE. [Suspect]
     Active Substance: SPIRONOLACTONE
     Indication: PRODUCT USED FOR UNKNOWN INDICATION
     Dosage: 50 MILLIGRAM(50 MG, 1?0?0?0)
     Route: 065
  2. SIMVASTATIN. [Concomitant]
     Active Substance: SIMVASTATIN
     Indication: PRODUCT USED FOR UNKNOWN INDICATION
     Dosage: 20 MILLIGRAM(20 MG, 0?0?1?0)
     Route: 065
  3. BISOPROLOL [Suspect]
     Active Substance: BISOPROLOL
     Indication: PRODUCT USED FOR UNKNOWN INDICATION
     Dosage: 5 MILLIGRAM(5 MG, 1?0?1?0)
     Route: 065
  4. RAMIPRIL. [Suspect]
     Active Substance: RAMIPRIL
     Indication: PRODUCT USED FOR UNKNOWN INDICATION
     Dosage: 5 MILLIGRAM(5 MG, 1?0?0.5?0)
     Route: 065
  5. TORASEMIDE [Suspect]
     Active Substance: TORSEMIDE
     Indication: PRODUCT USED FOR UNKNOWN INDICATION
     Dosage: 50 MILLIGRAM(50 MG, 1?0?0?0)
     Route: 065
  6. COLECALCIFEROL;RETINOL [Concomitant]
     Indication: PRODUCT USED FOR UNKNOWN INDICATION
     Dosage: 140 MICROGRAM(140 ?G, SCHEME)
     Route: 065
  7. APIXABAN [Concomitant]
     Active Substance: APIXABAN
     Indication: PRODUCT USED FOR UNKNOWN INDICATION
     Dosage: 2.5 MILLIGRAM(2.5 MG, 1?0?1?0)
     Route: 065
  8. NALOXONE;TILIDINE [Concomitant]
     Active Substance: NALOXONE HYDROCHLORIDE\TILIDINE HYDROCHLORIDE
     Indication: PRODUCT USED FOR UNKNOWN INDICATION
     Dosage: UNK(4|50 MG, 20?20?20?0)
     Route: 065
  9. ALENDRONIC ACID [Concomitant]
     Active Substance: ALENDRONIC ACID
     Indication: PRODUCT USED FOR UNKNOWN INDICATION
     Dosage: 70 MILLIGRAM(70 MG, SCHEME)
     Route: 065

REACTIONS (11)
  - Tachycardia [Unknown]
  - Oedema peripheral [Unknown]
  - Atrial fibrillation [Unknown]
  - Electrocardiogram abnormal [Unknown]
  - Skin irritation [Unknown]
  - Renal impairment [Unknown]
  - Weight increased [Unknown]
  - Anaemia [Unknown]
  - Systemic infection [Unknown]
  - Hyperkalaemia [Unknown]
  - General physical health deterioration [Unknown]
